FAERS Safety Report 8523152-0 (Version None)
Quarter: 2012Q3

REPORT INFORMATION
  Report Type: 
  Country: None (occurrence: None)
  Receive Date: 20120720
  Receipt Date: 20120706
  Transmission Date: 20120928
  Serious: Yes (Other)
  Sender: FDA-Public Use
  Company Number: VE-RANBAXY-2012RR-58049

PATIENT
  Age: 35 Year
  Sex: Female

DRUGS (1)
  1. PANTOPRAZOLE [Suspect]
     Indication: GASTRITIS
     Route: 065

REACTIONS (1)
  - DERMATITIS EXFOLIATIVE [None]
